FAERS Safety Report 5931947-2 (Version None)
Quarter: 2008Q4

REPORT INFORMATION
  Report Type: 
  Country: None (occurrence: None)
  Receive Date: 20081027
  Receipt Date: 20081020
  Transmission Date: 20090506
  Serious: Yes (Other)
  Sender: FDA-Public Use
  Company Number: PHHY2008DE25390

PATIENT
  Age: 71 Year
  Sex: Female
  Weight: 69.7 kg

DRUGS (1)
  1. ACLASTA [Suspect]
     Indication: OSTEOPOROTIC FRACTURE
     Dosage: 5 MG, 1 DAY
     Route: 042
     Dates: start: 20080520

REACTIONS (3)
  - MONOPARESIS [None]
  - NUCHAL RIGIDITY [None]
  - VISUAL IMPAIRMENT [None]
